FAERS Safety Report 21528324 (Version 2)
Quarter: 2022Q4

REPORT INFORMATION
  Report Type: Report from Study
  Country: GB (occurrence: GB)
  Receive Date: 20221031
  Receipt Date: 20221214
  Transmission Date: 20230112
  Serious: Yes (Hospitalization, Other)
  Sender: FDA-Public Use
  Company Number: GB-CELLTRION INC.-2022GB017715

PATIENT
  Age: 75 Year
  Sex: Female

DRUGS (95)
  1. TRASTUZUMAB [Suspect]
     Active Substance: TRASTUZUMAB
     Indication: Breast cancer
     Dosage: 600 MG, Q3W
     Dates: start: 20151126, end: 20151126
  2. TRASTUZUMAB [Suspect]
     Active Substance: TRASTUZUMAB
     Indication: HER2 positive breast cancer
     Dosage: 600 MG, Q3W
     Route: 042
  3. TRASTUZUMAB [Suspect]
     Active Substance: TRASTUZUMAB
     Dosage: 600 MILLIGRAM, Q3W
     Dates: start: 20150721, end: 20151126
  4. TRASTUZUMAB [Suspect]
     Active Substance: TRASTUZUMAB
     Dosage: 600 MG, Q3W
     Dates: start: 20150721, end: 20150721
  5. TRASTUZUMAB [Suspect]
     Active Substance: TRASTUZUMAB
     Dosage: 600 MG, Q3W
     Route: 042
     Dates: start: 20150721, end: 20150721
  6. TRASTUZUMAB [Suspect]
     Active Substance: TRASTUZUMAB
     Dosage: 600 MG, Q3W
     Route: 042
     Dates: start: 20151126, end: 20151126
  7. TRASTUZUMAB [Suspect]
     Active Substance: TRASTUZUMAB
     Dosage: 600 MG, Q3W
     Route: 048
     Dates: start: 20150721, end: 20151126
  8. TRASTUZUMAB [Suspect]
     Active Substance: TRASTUZUMAB
     Indication: Breast cancer
     Dosage: 600 MG, Q3W
     Dates: start: 20151126, end: 20151126
  9. TRASTUZUMAB [Suspect]
     Active Substance: TRASTUZUMAB
     Indication: HER2 positive breast cancer
     Dosage: 600 MILLIGRAM, Q3W
     Route: 042
  10. TRASTUZUMAB [Suspect]
     Active Substance: TRASTUZUMAB
     Dosage: 600 MILLIGRAM, Q3W
     Dates: start: 20150721, end: 20151126
  11. TRASTUZUMAB [Suspect]
     Active Substance: TRASTUZUMAB
     Dosage: 600 MG, Q3W
     Dates: start: 20150721, end: 20150721
  12. TRASTUZUMAB [Suspect]
     Active Substance: TRASTUZUMAB
     Dosage: 600 MG, Q3W
     Route: 042
     Dates: start: 20150721, end: 20150721
  13. TRASTUZUMAB [Suspect]
     Active Substance: TRASTUZUMAB
     Dosage: 600 MG, Q3W
     Route: 042
     Dates: start: 20151126, end: 20151126
  14. TRASTUZUMAB [Suspect]
     Active Substance: TRASTUZUMAB
     Dosage: 600 MG, Q3W
     Route: 048
     Dates: start: 20150721, end: 20151126
  15. PERTUZUMAB [Suspect]
     Active Substance: PERTUZUMAB
     Indication: Breast cancer metastatic
     Dosage: 420 MILLIGRAM, Q3W
     Route: 042
     Dates: start: 20151126, end: 20151126
  16. PERTUZUMAB [Suspect]
     Active Substance: PERTUZUMAB
     Indication: Breast cancer
     Dosage: 420 MILLIGRAM, Q3W (CUMULATIVE DOSE 20 NO UNIT AND 420 DOSE NO UNIT 420 MILLIGRAM, 3 WEEKS)
     Route: 042
  17. PERTUZUMAB [Suspect]
     Active Substance: PERTUZUMAB
     Dosage: 420 MG, EVERY 3 WEEKS
     Route: 042
     Dates: start: 20150721, end: 20151126
  18. PERTUZUMAB [Suspect]
     Active Substance: PERTUZUMAB
     Dosage: 420 MILLIGRAM, Q3W
     Route: 042
     Dates: start: 20150721, end: 20150721
  19. PERTUZUMAB [Suspect]
     Active Substance: PERTUZUMAB
     Dosage: 420 MG, EVERY 3 WEEKS
     Route: 048
     Dates: start: 20150721, end: 20151126
  20. PERTUZUMAB [Suspect]
     Active Substance: PERTUZUMAB
     Dosage: 420 MG, EVERY 3 WEEKS
     Route: 048
     Dates: start: 20150721, end: 20150721
  21. PERTUZUMAB [Suspect]
     Active Substance: PERTUZUMAB
     Dosage: 420 MG, EVERY 3 WEEKS
     Dates: start: 20151126
  22. ANASTROZOLE [Suspect]
     Active Substance: ANASTROZOLE
     Indication: Breast cancer metastatic
     Dosage: 10 MILLIGRAM, DAILY
  23. ANASTROZOLE [Suspect]
     Active Substance: ANASTROZOLE
     Indication: Breast cancer
     Dosage: 1 MG, 1X/DAY
     Dates: start: 20160115
  24. ANASTROZOLE [Suspect]
     Active Substance: ANASTROZOLE
     Indication: Breast cancer metastatic
     Dosage: 1 MG, QD
     Route: 042
  25. ANASTROZOLE [Suspect]
     Active Substance: ANASTROZOLE
     Indication: Breast cancer
     Dosage: 10 MG, QD
     Route: 042
  26. ANASTROZOLE [Suspect]
     Active Substance: ANASTROZOLE
     Dosage: 178.04 MG, QD
     Route: 042
  27. ANASTROZOLE [Suspect]
     Active Substance: ANASTROZOLE
     Indication: Breast cancer metastatic
     Dosage: 1 MG, QD
     Route: 042
  28. ANASTROZOLE [Suspect]
     Active Substance: ANASTROZOLE
     Indication: Breast cancer
  29. DOCETAXEL [Suspect]
     Active Substance: DOCETAXEL
     Indication: Breast cancer
     Dosage: 170 MILLIGRAM
     Dates: start: 20150721, end: 20150721
  30. DOCETAXEL [Suspect]
     Active Substance: DOCETAXEL
     Indication: Breast cancer metastatic
     Dosage: 170 MILLIGRAM
  31. DOCETAXEL [Suspect]
     Active Substance: DOCETAXEL
     Indication: HER2 positive breast cancer
     Dosage: 170 MG, Q3W
     Dates: start: 20150807, end: 20150807
  32. DOCETAXEL [Suspect]
     Active Substance: DOCETAXEL
     Dosage: 170 MILLIGRAM
     Dates: start: 20150721, end: 20150807
  33. DOCETAXEL [Suspect]
     Active Substance: DOCETAXEL
     Dosage: 170 MG, EVERY 3 WEEKS
     Route: 058
  34. DOCETAXEL [Suspect]
     Active Substance: DOCETAXEL
     Dosage: 170 MG, Q3W
     Route: 058
     Dates: start: 20150807, end: 20150807
  35. DOCETAXEL [Suspect]
     Active Substance: DOCETAXEL
     Dosage: 170 MILLIGRAM
     Route: 058
     Dates: start: 20150721, end: 20150721
  36. DOCETAXEL [Suspect]
     Active Substance: DOCETAXEL
     Dosage: 170 MILLIGRAM
     Route: 058
     Dates: start: 20150721, end: 20150807
  37. HYALURONIDASE [Suspect]
     Active Substance: HYALURONIDASE
     Indication: Product used for unknown indication
     Dosage: 600 MILLIGRAM, Q3W
     Dates: start: 20150721, end: 20151126
  38. METOCLOPRAMIDE [Concomitant]
     Active Substance: METOCLOPRAMIDE
     Indication: Prophylaxis
     Dosage: UNK
     Dates: start: 20150721, end: 20150727
  39. METOCLOPRAMIDE [Concomitant]
     Active Substance: METOCLOPRAMIDE
     Dosage: 10 MILLIGRAM, AS NECESSARY
     Dates: start: 20150730
  40. METOCLOPRAMIDE [Concomitant]
     Active Substance: METOCLOPRAMIDE
     Dosage: 10 MILLIGRAM, AS NECESSARY
     Dates: start: 20150721, end: 20150727
  41. DIGOXIN [Concomitant]
     Active Substance: DIGOXIN
     Dosage: 500 MILLIGRAM, PRN
     Dates: start: 201701
  42. DIGOXIN [Concomitant]
     Active Substance: DIGOXIN
     Dosage: 62.5 MICROGRAM
     Dates: start: 20160121
  43. DALTEPARIN [Concomitant]
     Active Substance: DALTEPARIN
     Indication: Pleural effusion
     Dosage: 10000 IU
     Dates: start: 20151206, end: 20151206
  44. DALTEPARIN [Concomitant]
     Active Substance: DALTEPARIN
     Dosage: UNK
     Dates: start: 20151206, end: 20151206
  45. DEXAMETHASONE [Concomitant]
     Active Substance: DEXAMETHASONE
     Indication: Prophylaxis
     Dosage: 1 GTT DROPS
     Dates: start: 20160601
  46. DEXAMETHASONE [Concomitant]
     Active Substance: DEXAMETHASONE
     Dosage: 8 MG BD FOR 3 DAYS (CUMULATIVE DOSE TO FIRST REACTION (NUMBER):32 MG)
     Dates: start: 20150721, end: 20150722
  47. FUROSEMIDE [Concomitant]
     Active Substance: FUROSEMIDE
     Indication: Dyspnoea
     Dosage: 40 MG, UNK
     Dates: start: 20151211
  48. FUROSEMIDE [Concomitant]
     Active Substance: FUROSEMIDE
     Dosage: 50 MG, 2X/DAY
     Dates: start: 20151206, end: 20151207
  49. LIDOCAINE [Concomitant]
     Active Substance: LIDOCAINE
     Indication: Pain
     Dosage: UNK, AS NEEDED
     Dates: start: 20190405
  50. LISINOPRIL [Concomitant]
     Active Substance: LISINOPRIL
     Indication: Dyspnoea
     Dosage: 5 MG, UNK
     Dates: start: 20151218, end: 20160121
  51. LISINOPRIL [Concomitant]
     Active Substance: LISINOPRIL
     Dosage: 2.5 MG, UNK
     Dates: start: 20160121, end: 20160415
  52. ATORVASTATIN [Concomitant]
     Active Substance: ATORVASTATIN
     Indication: Prophylaxis
     Dosage: 20 MG, DAILY
     Dates: start: 20161130
  53. ATORVASTATIN [Concomitant]
     Active Substance: ATORVASTATIN
     Dosage: 20 MG, 1X/DAY
  54. DIAMOX SEQUELS [Concomitant]
     Active Substance: ACETAZOLAMIDE
     Dosage: 1 GTT, UNK
     Dates: start: 20160601, end: 20160604
  55. IMODIUM [Concomitant]
     Active Substance: LOPERAMIDE HYDROCHLORIDE
     Dosage: 4 MILLIGRAM, AS NECESSARY
     Dates: start: 20150730
  56. ORAMORPH SR SUSTAINED RELEASE [Concomitant]
     Active Substance: MORPHINE SULFATE
     Indication: Pain
     Dosage: 5 MG, AS NEEDED
     Dates: start: 20190405
  57. INDAPAMIDE [Concomitant]
     Active Substance: INDAPAMIDE
     Indication: Prophylaxis
     Dosage: 2.5 MG, 1X/DAY
     Dates: start: 2016
  58. BISOPROLOL [Concomitant]
     Active Substance: BISOPROLOL
     Indication: Ejection fraction decreased
     Dosage: 2.5 MG, UNK
     Dates: start: 20160415
  59. BISOPROLOL [Concomitant]
     Active Substance: BISOPROLOL
     Indication: Prophylaxis
     Dosage: 2.5 MG, 1X/DAY
     Dates: start: 201603
  60. BISOPROLOL [Concomitant]
     Active Substance: BISOPROLOL
     Dosage: 1.25 MG, UNK
     Dates: start: 20160121
  61. FELODIPINE [Concomitant]
     Active Substance: FELODIPINE
     Dosage: 2.5 MG, 1X/DAY
     Dates: start: 20161030
  62. ACETAMINOPHEN [Concomitant]
     Active Substance: ACETAMINOPHEN
     Indication: Premedication
     Dosage: 1 G, EVERY 3 WEEKS
     Dates: start: 20150721, end: 20151126
  63. ACETAMINOPHEN [Concomitant]
     Active Substance: ACETAMINOPHEN
     Dosage: 1 G, EVERY 3 WEEKS
     Dates: start: 20160531
  64. IBUPROFEN [Concomitant]
     Active Substance: IBUPROFEN
     Dosage: 1200 MILLIGRAM, ONCE A DAY
     Dates: start: 20150918
  65. CANDESARTAN [Concomitant]
     Active Substance: CANDESARTAN
     Dosage: 32 MG, 1X/DAY
     Dates: start: 2013
  66. FENTANYL [Concomitant]
     Active Substance: FENTANYL
     Dosage: 200 UG, UNK
     Dates: start: 20160531, end: 20160601
  67. COCODAMOL [Concomitant]
     Active Substance: ACETAMINOPHEN\CODEINE PHOSPHATE
     Dosage: AS NEEDED
     Dates: start: 20150720
  68. COCODAMOL [Concomitant]
     Active Substance: ACETAMINOPHEN\CODEINE PHOSPHATE
     Dosage: 500 MG, PRN
  69. ALENDRONIC ACID [Concomitant]
     Active Substance: ALENDRONIC ACID
     Indication: Osteopenia
     Dosage: 70 MG, WEEKLY
     Dates: start: 20180205
  70. CO-DYDRAMOL [Concomitant]
     Active Substance: ACETAMINOPHEN\DIHYDROCODEINE
     Indication: Back pain
     Dosage: 500 MG, AS NEEDED
     Dates: start: 201701
  71. CO-DYDRAMOL [Concomitant]
     Active Substance: ACETAMINOPHEN\DIHYDROCODEINE
     Dosage: 500 MG
     Dates: start: 201701
  72. ONDANSETRON [Concomitant]
     Active Substance: ONDANSETRON
     Indication: Prophylaxis
     Dosage: 8 MG, 2X/DAY(TWICE DAILY FOR 3 DAYS POST CHEMOTHERAPY)
     Dates: start: 20150721, end: 20150722
  73. TRIMETHOPRIM [Concomitant]
     Active Substance: TRIMETHOPRIM
     Indication: Urinary tract infection
     Dosage: 200 MG, 1X/DAY
     Dates: start: 20181019, end: 20181023
  74. IOPIDINE [APRACLONIDINE] [Concomitant]
     Dosage: 1 GTT, UNK
     Dates: start: 20160601, end: 20160629
  75. RAMIPRIL [Concomitant]
     Active Substance: RAMIPRIL
     Indication: Prophylaxis
     Dosage: 7.5 MILLIGRAM, QD
     Dates: start: 201605, end: 201605
  76. RAMIPRIL [Concomitant]
     Active Substance: RAMIPRIL
     Dosage: 5 MILLIGRAM, BID
     Dates: start: 2016
  77. RAMIPRIL [Concomitant]
     Active Substance: RAMIPRIL
     Dosage: 3.75 MILLIGRAM, QD
     Dates: start: 201605, end: 201606
  78. RAMIPRIL [Concomitant]
     Active Substance: RAMIPRIL
     Dosage: UNK UNK, QD
     Dates: start: 20160415, end: 201605
  79. RAMIPRIL [Concomitant]
     Active Substance: RAMIPRIL
     Dosage: 2 DOSAGE FORM
     Dates: start: 20160415, end: 201605
  80. RAMIPRIL [Concomitant]
     Active Substance: RAMIPRIL
     Dosage: 5 MG; 0.5 DAY
     Dates: start: 2016
  81. CALCIUM CARBONATE [Concomitant]
     Active Substance: CALCIUM CARBONATE
     Indication: Osteopenia
     Dosage: 500 MG, 2X/DAY
     Dates: start: 20180205
  82. CALCIUM CARBONATE [Concomitant]
     Active Substance: CALCIUM CARBONATE
     Dosage: 500 MG, 2X/DAY
     Dates: start: 20180205
  83. CLOPIDOGREL [Concomitant]
     Active Substance: CLOPIDOGREL BISULFATE
     Indication: Prophylaxis
     Dosage: 75 MG, 1X/DAY
     Dates: start: 20161130
  84. CLOPIDOGREL [Concomitant]
     Active Substance: CLOPIDOGREL BISULFATE
     Dosage: 75 MG, 1X/DAY
  85. CYCLOPENTOLATE HYDROCHLORIDE [Concomitant]
     Active Substance: CYCLOPENTOLATE HYDROCHLORIDE
     Dosage: 1 GTT, UNK
     Dates: start: 20160601, end: 20160610
  86. CHLORPHENIRAMINE MALEATE [Concomitant]
     Active Substance: CHLORPHENIRAMINE MALEATE
     Indication: Premedication
     Dosage: 10 MG, EVERY 3 WEEKS
     Dates: start: 20150721, end: 20151126
  87. TOBRADEX [Concomitant]
     Active Substance: DEXAMETHASONE\TOBRAMYCIN
     Dosage: 1 GTT DROPS
     Dates: start: 20160601
  88. TOBRADEX [Concomitant]
     Active Substance: DEXAMETHASONE\TOBRAMYCIN
     Dosage: 1 GTT DROPS
     Dates: start: 20160601
  89. TOBRADEX [Concomitant]
     Active Substance: DEXAMETHASONE\TOBRAMYCIN
     Dosage: 1 DROP
     Dates: start: 20160601
  90. TOBRADEX [Concomitant]
     Active Substance: DEXAMETHASONE\TOBRAMYCIN
     Dosage: 1 DROP
     Dates: start: 20160601
  91. TOBRADEX [Concomitant]
     Active Substance: DEXAMETHASONE\TOBRAMYCIN
     Dosage: 1 GTT DROPS
     Dates: start: 20160601
  92. TOBRADEX [Concomitant]
     Active Substance: DEXAMETHASONE\TOBRAMYCIN
     Dosage: 1 GTT, UNK
     Dates: start: 20160601
  93. PREDNISOLONE [Concomitant]
     Active Substance: PREDNISOLONE
     Dosage: 40 MG, DAILY
     Dates: start: 20160601, end: 20160606
  94. SENNA [Concomitant]
     Active Substance: SENNA LEAF\SENNOSIDES\SENNOSIDES A AND B
     Dosage: 15 MILLIGRAM, ONCE A DAY
     Dates: start: 20150721
  95. TOBRAMYCIN [Concomitant]
     Active Substance: TOBRAMYCIN
     Indication: Premedication
     Dosage: 200 MILLIGRAM, ONCE A DAY
     Dates: start: 20181019, end: 20181023

REACTIONS (20)
  - Rectal haemorrhage [Recovered/Resolved]
  - Retinal detachment [Recovered/Resolved with Sequelae]
  - Retinal detachment [Recovered/Resolved with Sequelae]
  - Presyncope [Recovered/Resolved]
  - Condition aggravated [Recovered/Resolved]
  - Pleural effusion [Recovered/Resolved]
  - Haemorrhoids [Recovered/Resolved with Sequelae]
  - Back pain [Recovered/Resolved]
  - Weight decreased [Recovered/Resolved]
  - Alopecia [Recovered/Resolved]
  - Diarrhoea [Recovered/Resolved]
  - Osteopenia [Not Recovered/Not Resolved]
  - Dizziness [Recovered/Resolved]
  - Diarrhoea [Recovered/Resolved]
  - Nausea [Recovered/Resolved]
  - Dyspnoea [Recovered/Resolved]
  - Back pain [Recovered/Resolved]
  - Constipation [Recovered/Resolved]
  - Ejection fraction decreased [Recovered/Resolved]
  - Fatigue [Not Recovered/Not Resolved]

NARRATIVE: CASE EVENT DATE: 20150721
